FAERS Safety Report 11641000 (Version 3)
Quarter: 2016Q2

REPORT INFORMATION
  Report Type: Spontaneous
  Country: US (occurrence: US)
  Receive Date: 20151019
  Receipt Date: 20160609
  Transmission Date: 20160815
  Serious: No
  Sender: FDA-Public Use
  Company Number: US-ACTELION PHARMACEUTICALS US, INC.-A-NJ2015-125555

PATIENT
  Age: 62 Year
  Sex: Female

DRUGS (3)
  1. RIOCIGUAT [Concomitant]
     Active Substance: RIOCIGUAT
  2. TRACLEER [Suspect]
     Active Substance: BOSENTAN
     Indication: PULMONARY ARTERIAL HYPERTENSION
     Dosage: 125 MG, UNK
     Route: 048
     Dates: start: 20040820
  3. REMODULIN [Concomitant]
     Active Substance: TREPROSTINIL

REACTIONS (8)
  - Urticaria [Unknown]
  - Pulmonary arterial hypertension [Unknown]
  - Catheter site related reaction [Unknown]
  - Gallbladder disorder [Unknown]
  - Dyspnoea [Unknown]
  - Syncope [Unknown]
  - Malaise [Unknown]
  - Device issue [Unknown]

NARRATIVE: CASE EVENT DATE: 20151008
